FAERS Safety Report 4595435-0 (Version None)
Quarter: 2005Q1

REPORT INFORMATION
  Report Type: 
  Country: None (occurrence: None)
  Receive Date: 20050224
  Receipt Date: 20050208
  Transmission Date: 20050727
  Serious: Yes (Other)
  Sender: FDA-Public Use
  Company Number: USA041286683

PATIENT
  Age: 7 Year
  Sex: Male
  Weight: 22 kg

DRUGS (1)
  1. STRATTERA [Suspect]
     Indication: ATTENTION DEFICIT/HYPERACTIVITY DISORDER
     Dosage: 40 MG DAY
     Dates: start: 20031201

REACTIONS (8)
  - ABDOMINAL PAIN [None]
  - BLOOD CHOLESTEROL INCREASED [None]
  - BLOOD IMMUNOGLOBULIN A INCREASED [None]
  - BLOOD TRIGLYCERIDES INCREASED [None]
  - BLOOD URINE PRESENT [None]
  - CHROMATURIA [None]
  - INFLUENZA LIKE ILLNESS [None]
  - VOMITING [None]
